FAERS Safety Report 5486602-2 (Version None)
Quarter: 2007Q3

REPORT INFORMATION
  Report Type: 
  Country: None (occurrence: None)
  Receive Date: 20070920
  Receipt Date: 20061211
  Transmission Date: 20080115
  Serious: No
  Sender: FDA-Public Use
  Company Number: 06P-163-0343314-00

PATIENT
  Age: 53 Year
  Sex: Male
  Weight: 90.9 kg

DRUGS (4)
  1. DEPAKOTE ER [Suspect]
     Indication: BIPOLAR DISORDER
     Dosage: 1 IN 1 D , PER ORAL
     Route: 048
     Dates: start: 20060118, end: 20060208
  2. DEPAKOTE ER [Suspect]
     Indication: BIPOLAR DISORDER
     Dosage: 1 IN 1 D , PER ORAL
     Route: 048
     Dates: start: 20060209, end: 20060911
  3. DEPAKOTE ER [Suspect]
     Indication: BIPOLAR DISORDER
     Dosage: 1 IN 1 D , PER ORAL
     Route: 048
     Dates: start: 20060911
  4. LAMOTRIGINE [Concomitant]

REACTIONS (1)
  - DEAFNESS [None]
